FAERS Safety Report 16239919 (Version 2)
Quarter: 2020Q3

REPORT INFORMATION
  Report Type: Report from Study
  Country: AU (occurrence: AU)
  Receive Date: 20190425
  Receipt Date: 20190614
  Transmission Date: 20201105
  Serious: Yes (Hospitalization)
  Sender: FDA-Public Use
  Company Number: AU-ASTRAZENECA-2019SE59549

PATIENT

DRUGS (8)
  1. METHYLPREDNISOLONE. [Concomitant]
     Active Substance: METHYLPREDNISOLONE
     Dosage: 0.1%
     Dates: start: 20190404, end: 20190414
  2. AMITRIPTYLINE [Concomitant]
     Active Substance: AMITRIPTYLINE
     Dosage: 10 MG
     Dates: start: 2017, end: 20190414
  3. LORATADINE. [Concomitant]
     Active Substance: LORATADINE
     Dosage: 10 MG
     Dates: start: 20190404, end: 20190414
  4. DURVALUMAB. [Suspect]
     Active Substance: DURVALUMAB
     Dosage: 1500.0MG ONCE/SINGLE ADMINISTRATION
     Route: 042
     Dates: start: 20190307, end: 20190411
  5. TRASTUZUMAB. [Suspect]
     Active Substance: TRASTUZUMAB
     Dosage: 123.0MG ONCE/SINGLE ADMINISTRATION
     Route: 042
     Dates: start: 20190307, end: 20190412
  6. MIRTAZAPINE. [Concomitant]
     Active Substance: MIRTAZAPINE
     Dosage: 15 MG
     Dates: start: 201802, end: 20190414
  7. TREMELIMUMAB. [Suspect]
     Active Substance: TREMELIMUMAB
     Dosage: 75.0MG ONCE/SINGLE ADMINISTRATION
     Route: 042
     Dates: start: 20190307, end: 20190411
  8. METOCLOPROMIDE [Concomitant]
     Active Substance: METOCLOPRAMIDE
     Dosage: 30 MG
     Dates: start: 20190412, end: 20190414

REACTIONS (1)
  - Vomiting [Recovered/Resolved]

NARRATIVE: CASE EVENT DATE: 20190415
